FAERS Safety Report 20026499 (Version 3)
Quarter: 2022Q1

REPORT INFORMATION
  Report Type: Spontaneous
  Country: DE (occurrence: DE)
  Receive Date: 20211102
  Receipt Date: 20220216
  Transmission Date: 20220424
  Serious: Yes (Hospitalization, Other)
  Sender: FDA-Public Use
  Company Number: None

PATIENT
  Age: 80 Year
  Sex: Male
  Weight: 87 kg

DRUGS (5)
  1. CLOPIDOGREL BISULFATE [Suspect]
     Active Substance: CLOPIDOGREL BISULFATE
     Indication: Aphasia
     Dosage: 75 MG, QD, (PAUSED 1 WEEK BEFORE SURGERY)
     Dates: start: 202106, end: 202109
  2. CLOPIDOGREL BISULFATE [Suspect]
     Active Substance: CLOPIDOGREL BISULFATE
     Indication: Dysarthria
     Dosage: 75MG, QD
     Route: 048
     Dates: start: 20210929
  3. CLOPIDOGREL BISULFATE [Suspect]
     Active Substance: CLOPIDOGREL BISULFATE
     Indication: Cerebrovascular accident prophylaxis
     Dosage: 75MG, QD
     Route: 048
     Dates: start: 20211006
  4. CLOPIDOGREL BISULFATE [Suspect]
     Active Substance: CLOPIDOGREL BISULFATE
     Indication: Cerebral infarction
  5. ATORVASTATIN [Concomitant]
     Active Substance: ATORVASTATIN
     Indication: Coronary artery disease
     Dosage: 80MG, QD

REACTIONS (8)
  - Thrombosis [Recovered/Resolved]
  - Aphasia [Recovered/Resolved]
  - Wound closure [Recovered/Resolved]
  - Language disorder [Recovered/Resolved]
  - Blood urine present [Recovered/Resolved]
  - Haematuria [Recovered/Resolved]
  - Pain [Not Recovered/Not Resolved]
  - Haematoma [Not Recovered/Not Resolved]

NARRATIVE: CASE EVENT DATE: 20210929
